FAERS Safety Report 9312504 (Version 2)
Quarter: 2013Q3

REPORT INFORMATION
  Report Type: Spontaneous
  Country: US (occurrence: US)
  Receive Date: 20130528
  Receipt Date: 20130726
  Transmission Date: 20140515
  Serious: Yes (Other)
  Sender: FDA-Public Use
  Company Number: US-BAYER-2013-065048

PATIENT
  Age: 37 Year
  Sex: Female
  Weight: 76 kg

DRUGS (7)
  1. MIRENA [Suspect]
     Indication: CONTRACEPTION
     Dosage: 20 MCG/24HR, CONT
     Route: 015
     Dates: start: 20121227, end: 20130606
  2. MIRENA [Suspect]
     Indication: MENORRHAGIA
  3. MIRENA [Suspect]
     Indication: ENDOMETRIOSIS
  4. COUMADIN [Concomitant]
     Indication: PULMONARY EMBOLISM
     Dosage: 2.5 MG, QD
  5. LYRICA [Concomitant]
     Dosage: 75 MG, BID
  6. PROZAC [Concomitant]
     Indication: DEPRESSION
     Dosage: 20 MG, QD
  7. LEVOXYL [Concomitant]
     Indication: HYPOTHYROIDISM
     Dosage: 75 ?G, QD

REACTIONS (4)
  - Genital haemorrhage [Recovered/Resolved]
  - Ovarian cyst [None]
  - Device dislocation [None]
  - Pain [Recovered/Resolved]
